FAERS Safety Report 8363929-8 (Version None)
Quarter: 2012Q2

REPORT INFORMATION
  Report Type: 
  Country: None (occurrence: None)
  Receive Date: 20120516
  Receipt Date: 20120203
  Transmission Date: 20120825
  Serious: No
  Sender: FDA-Public Use
  Company Number: US-ALEXION-A201200200

PATIENT
  Sex: Male

DRUGS (7)
  1. ERYTHROMYCIN [Suspect]
     Indication: IMMUNE SYSTEM DISORDER
     Dosage: 500 MG, BID
  2. PROCRIT [Concomitant]
  3. RENVELA [Concomitant]
  4. SOLIRIS [Suspect]
     Dosage: 1200 MG, Q2W
     Route: 042
  5. VITAMIN B COMPLEX CAP [Concomitant]
  6. ZEMPLAR [Concomitant]
  7. SOLIRIS [Suspect]
     Indication: PAROXYSMAL NOCTURNAL HAEMOGLOBINURIA
     Dosage: 960 MG, QW
     Route: 042

REACTIONS (4)
  - IMMUNE SYSTEM DISORDER [None]
  - ABDOMINAL DISCOMFORT [None]
  - TREMOR [None]
  - DIZZINESS [None]
